FAERS Safety Report 11939286 (Version 4)
Quarter: 2017Q3

REPORT INFORMATION
  Report Type: Report from Study
  Country: US (occurrence: US)
  Receive Date: 20160122
  Receipt Date: 20170703
  Transmission Date: 20171127
  Serious: Yes (Other)
  Sender: FDA-Public Use
  Company Number: US-ACTELION-A-US2016-130121

PATIENT
  Age: 77 Year
  Sex: Male
  Weight: 101.59 kg

DRUGS (3)
  1. AMLODIPINE [Concomitant]
     Active Substance: AMLODIPINE BESYLATE
  2. TRACLEER [Suspect]
     Active Substance: BOSENTAN
     Indication: PULMONARY ARTERIAL HYPERTENSION
     Dosage: 125 MG, BID
     Route: 048
  3. ELIQUIS [Concomitant]
     Active Substance: APIXABAN

REACTIONS (17)
  - Fall [Unknown]
  - Loss of consciousness [Recovering/Resolving]
  - Aortic calcification [Unknown]
  - Joint swelling [Unknown]
  - Spinal fracture [Unknown]
  - Peripheral swelling [Unknown]
  - Cough [Unknown]
  - Memory impairment [Unknown]
  - Tremor [Unknown]
  - Dyspnoea [Unknown]
  - Abdominal distension [Unknown]
  - Condition aggravated [Unknown]
  - Asthenia [Unknown]
  - Joint injury [Unknown]
  - Syncope [Unknown]
  - Seizure [Unknown]
  - Road traffic accident [Unknown]

NARRATIVE: CASE EVENT DATE: 201501
